FAERS Safety Report 23656233 (Version 7)
Quarter: 2024Q3

REPORT INFORMATION
  Report Type: Report from Study
  Country: AR (occurrence: AR)
  Receive Date: 20240321
  Receipt Date: 20240711
  Transmission Date: 20241016
  Serious: Yes (Other)
  Sender: NOVARTIS
  Company Number: AR-002147023-NVSC2024AR052467

PATIENT
  Sex: Female

DRUGS (9)
  1. KISQALI [Suspect]
     Active Substance: RIBOCICLIB
     Indication: Breast cancer metastatic
     Dosage: 400 MG, QD, (2 OF 200MG), SHE USED IT FOR 21 DAYS AND THEN RESTED FOR 7 DAYS
     Route: 048
     Dates: start: 20231103, end: 202403
  2. KISQALI [Suspect]
     Active Substance: RIBOCICLIB
     Dosage: UNK
     Route: 047
  3. KISQALI [Suspect]
     Active Substance: RIBOCICLIB
     Dosage: 200 MG, BID
     Route: 048
     Dates: start: 20231103, end: 20240227
  4. KISQALI [Suspect]
     Active Substance: RIBOCICLIB
     Dosage: UNK
     Route: 065
     Dates: start: 20231103, end: 202403
  5. KISQALI [Suspect]
     Active Substance: RIBOCICLIB
     Dosage: UNK
     Route: 065
     Dates: end: 20240625
  6. KISQALI [Suspect]
     Active Substance: RIBOCICLIB
     Dosage: UNK
     Route: 048
     Dates: end: 202403
  7. LETROZOLE [Suspect]
     Active Substance: LETROZOLE
     Indication: Breast cancer metastatic
     Dosage: UNK
     Route: 048
     Dates: start: 202304
  8. PAMIDRONATE [Concomitant]
     Active Substance: PAMIDRONATE DISODIUM
     Indication: Product used for unknown indication
     Dosage: UNK, QMO
     Route: 042
  9. DICLOFENAC [Concomitant]
     Active Substance: DICLOFENAC
     Indication: Product used for unknown indication
     Dosage: SPORADICALLY
     Route: 065

REACTIONS (13)
  - Cardiac arrest [Unknown]
  - Myocardial injury [Unknown]
  - Cardiac disorder [Unknown]
  - Decreased immune responsiveness [Recovered/Resolved]
  - Liver disorder [Unknown]
  - Drug intolerance [Unknown]
  - Dyspepsia [Unknown]
  - Depressed mood [Unknown]
  - Incorrect route of product administration [Unknown]
  - Blood test abnormal [Unknown]
  - Electrocardiogram abnormal [Unknown]
  - Palpitations [Unknown]
  - Lymphadenopathy [Unknown]

NARRATIVE: CASE EVENT DATE: 20230101
